FAERS Safety Report 4541371-5 (Version None)
Quarter: 2004Q4

REPORT INFORMATION
  Report Type: 
  Country: None (occurrence: None)
  Receive Date: 20041227
  Receipt Date: 20041207
  Transmission Date: 20050328
  Serious: Yes (Other)
  Sender: FDA-Public Use
  Company Number: 210060

PATIENT
  Age: 70 Year
  Sex: Male

DRUGS (5)
  1. MABTHERA (RITUXIMAB) CONC FOR SOLUTION FOR INFUSION [Suspect]
     Dosage: INTRAVENOUS
     Route: 042
  2. CYCLOPHOSPHAMIDE [Concomitant]
  3. VINCRISTINE [Concomitant]
  4. DOXORUBICIN (DOXORUBICIN HYDROCHLORIDE, DOXORUBICIN) [Concomitant]
  5. PREDNISONE [Concomitant]

REACTIONS (2)
  - HAEMOGLOBIN DECREASED [None]
  - TRANSIENT ISCHAEMIC ATTACK [None]
